FAERS Safety Report 5012612-5 (Version None)
Quarter: 2006Q2

REPORT INFORMATION
  Report Type: 
  Country: None (occurrence: None)
  Receive Date: 20060410
  Receipt Date: 20060302
  Transmission Date: 20061013
  Serious: No
  Sender: FDA-Public Use
  Company Number: ENTC2006-0068

PATIENT
  Age: 55 Year
  Sex: Male

DRUGS (3)
  1. STALEVO 150 [Suspect]
     Indication: PARKINSON'S DISEASE
     Dosage: 900 MG, 1 IN 4 H, ORAL
     Route: 048
     Dates: start: 20031124
  2. KLONOPIN [Concomitant]
  3. MIRAPEX [Concomitant]

REACTIONS (1)
  - DRUG INEFFECTIVE [None]
